FAERS Safety Report 20438254 (Version 1)
Quarter: 2022Q1

REPORT INFORMATION
  Report Type: Spontaneous
  Country: US (occurrence: US)
  Receive Date: 20220207
  Receipt Date: 20220207
  Transmission Date: 20220424
  Serious: Yes (Death)
  Sender: FDA-Public Use
  Company Number: US-GW PHARMA-202201USGW00456

PATIENT

DRUGS (1)
  1. EPIDIOLEX [Suspect]
     Active Substance: CANNABIDIOL
     Indication: Product used for unknown indication
     Dosage: 420 MILLIGRAM, BID (VIA G-TUBE)
     Dates: start: 201910

REACTIONS (1)
  - Death [Fatal]

NARRATIVE: CASE EVENT DATE: 20220122
